FAERS Safety Report 15508727 (Version 1)
Quarter: 2018Q4

REPORT INFORMATION
  Report Type: Spontaneous
  Country: US (occurrence: US)
  Receive Date: 20181016
  Receipt Date: 20181016
  Transmission Date: 20190205
  Serious: No
  Sender: FDA-Public Use
  Company Number: US-AMGEN-USASP2018057704

PATIENT
  Age: 84 Year
  Sex: Male

DRUGS (2)
  1. SENSIPAR [Suspect]
     Active Substance: CINACALCET HYDROCHLORIDE
     Indication: PRODUCT USED FOR UNKNOWN INDICATION
     Dosage: 60 MG, QD
     Route: 048
     Dates: start: 2015
  2. RENAGEL [Concomitant]
     Active Substance: SEVELAMER HYDROCHLORIDE
     Dosage: UNK

REACTIONS (6)
  - Hypophagia [Unknown]
  - Sleep disorder due to general medical condition, insomnia type [Unknown]
  - Fall [Unknown]
  - Gait disturbance [Unknown]
  - Blood phosphorus increased [Unknown]
  - Asthenia [Unknown]
